FAERS Safety Report 16620433 (Version 1)
Quarter: 2019Q3

REPORT INFORMATION
  Report Type: Spontaneous
  Country: US (occurrence: US)
  Receive Date: 20190723
  Receipt Date: 20190723
  Transmission Date: 20191004
  Serious: No
  Sender: FDA-Public Use
  Company Number: US-OTSUKA-2018_026979

PATIENT
  Age: 59 Year
  Sex: Female

DRUGS (2)
  1. REXULTI [Suspect]
     Active Substance: BREXPIPRAZOLE
     Indication: DEPRESSION
  2. REXULTI [Suspect]
     Active Substance: BREXPIPRAZOLE
     Indication: OBSESSIVE-COMPULSIVE DISORDER
     Dosage: 1 MG, QD
     Route: 048

REACTIONS (12)
  - Logorrhoea [Unknown]
  - Hunger [Unknown]
  - Therapeutic response unexpected [Unknown]
  - Irritable bowel syndrome [Unknown]
  - Fatigue [Unknown]
  - Product use in unapproved indication [Unknown]
  - Mood swings [Unknown]
  - Insomnia [Unknown]
  - Mania [Unknown]
  - Restlessness [Unknown]
  - Mental disorder [Unknown]
  - Decreased appetite [Unknown]

NARRATIVE: CASE EVENT DATE: 201807
